FAERS Safety Report 20886667 (Version 1)
Quarter: 2022Q2

REPORT INFORMATION
  Report Type: Spontaneous
  Country: CA (occurrence: CA)
  Receive Date: 20220527
  Receipt Date: 20220527
  Transmission Date: 20220721
  Serious: Yes (Other)
  Sender: FDA-Public Use
  Company Number: CA-SAMSUNG BIOEPIS-SB-2022-12260

PATIENT
  Age: 49 Year
  Sex: Male
  Weight: 107 kg

DRUGS (4)
  1. INFLIXIMAB [Suspect]
     Active Substance: INFLIXIMAB
     Indication: Colitis ulcerative
     Route: 042
  2. BENADRYL [Concomitant]
     Active Substance: DIPHENHYDRAMINE HYDROCHLORIDE
     Indication: Premedication
     Dosage: UNKNOWN
     Route: 065
  3. PREDNISONE [Concomitant]
     Active Substance: PREDNISONE
     Indication: Product used for unknown indication
     Dosage: UNKNOWN
     Route: 065
  4. TYLENOL [Concomitant]
     Active Substance: ACETAMINOPHEN
     Indication: Premedication
     Dosage: UNKNOWN
     Route: 048

REACTIONS (20)
  - Blood pressure abnormal [Unknown]
  - Bowel movement irregularity [Unknown]
  - Condition aggravated [Unknown]
  - Diarrhoea haemorrhagic [Unknown]
  - Dry skin [Unknown]
  - Erythema [Unknown]
  - Feeling hot [Unknown]
  - Heart rate increased [Unknown]
  - Hyperhidrosis [Unknown]
  - Hypopnoea [Unknown]
  - Lip dry [Unknown]
  - Loss of consciousness [Unknown]
  - Nail bed infection [Unknown]
  - Pallor [Unknown]
  - Pulse abnormal [Unknown]
  - Vomiting [Unknown]
  - Weight increased [Unknown]
  - Drug level below therapeutic [Unknown]
  - Inappropriate schedule of product administration [Unknown]
  - Off label use [Unknown]
